FAERS Safety Report 7108707-2 (Version None)
Quarter: 2010Q4

REPORT INFORMATION
  Report Type: 
  Country: None (occurrence: None)
  Receive Date: 20101115
  Receipt Date: 20101115
  Transmission Date: 20110411
  Serious: Yes (Life-Threatening, Hospitalization, Disabling)
  Sender: FDA-Public Use
  Company Number: None

PATIENT
  Age: 16 Year
  Sex: Female
  Weight: 57.1532 kg

DRUGS (1)
  1. LOESTRINE 24 FE 1-20 -24 --75 -4- MG-MCG-MG  WARNER CHILCOTT LABS [Suspect]
     Indication: MENSTRUAL CYCLE MANAGEMENT
     Dosage: 1 TABLET ONCE A DAY PO
     Route: 048
     Dates: start: 20081212, end: 20100920

REACTIONS (8)
  - ANXIETY [None]
  - CHEST PAIN [None]
  - DIZZINESS [None]
  - DRUG INEFFECTIVE [None]
  - DYSPNOEA [None]
  - HYPERHIDROSIS [None]
  - PAIN IN EXTREMITY [None]
  - THROMBOSIS [None]
